FAERS Safety Report 8764560 (Version 1)
Quarter: 2012Q4

REPORT INFORMATION
  Report Type: 
  Country: US (occurrence: US)
  Receive Date: 20120831
  Receipt Date: 20120831
  Transmission Date: 20130627
  Serious: No
  Sender: FDA-Public Use
  Company Number: US-ASTRAZENECA-2012SE25414

PATIENT
  Age: 61 Year
  Sex: Male
  Weight: 72.6 kg

DRUGS (3)
  1. SYMBICORT [Suspect]
     Indication: EMPHYSEMA
     Dosage: 160/4.5MCG 2 PUFFS BID
     Route: 055
  2. SYMBICORT [Suspect]
     Indication: EMPHYSEMA
     Dosage: 160/4.5MCG, 1 PUFF QD
     Route: 055
  3. VENTOLIN [Concomitant]

REACTIONS (3)
  - Body height decreased [Unknown]
  - Off label use [Unknown]
  - Device misuse [Unknown]
